FAERS Safety Report 17543242 (Version 5)
Quarter: 2020Q4

REPORT INFORMATION
  Report Type: Report from Study
  Country: US (occurrence: US)
  Receive Date: 20200316
  Receipt Date: 20201124
  Transmission Date: 20210113
  Serious: No
  Sender: FDA-Public Use
  Company Number: NVSC2020US069648

PATIENT
  Sex: Female

DRUGS (3)
  1. GILENYA [Suspect]
     Active Substance: FINGOLIMOD HYDROCHLORIDE
     Indication: MULTIPLE SCLEROSIS
     Dosage: 0.5 MG, QD
     Route: 048
  2. GILENYA [Suspect]
     Active Substance: FINGOLIMOD HYDROCHLORIDE
     Dosage: 0.5 MG, QD
     Route: 048
     Dates: start: 20160812
  3. GILENYA [Suspect]
     Active Substance: FINGOLIMOD HYDROCHLORIDE
     Dosage: 0.5 MG
     Route: 048
     Dates: start: 20200309

REACTIONS (12)
  - Memory impairment [Unknown]
  - Speech disorder [Unknown]
  - Liver disorder [Unknown]
  - Visual impairment [Unknown]
  - Heart rate increased [Unknown]
  - Constipation [Unknown]
  - Skin disorder [Unknown]
  - Movement disorder [Not Recovered/Not Resolved]
  - Dysuria [Unknown]
  - Fall [Unknown]
  - Peroneal nerve palsy [Unknown]
  - Mobility decreased [Unknown]
